FAERS Safety Report 7190411-6 (Version None)
Quarter: 2010Q4

REPORT INFORMATION
  Report Type: 
  Country: None (occurrence: None)
  Receive Date: 20101223
  Receipt Date: 20101214
  Transmission Date: 20110411
  Serious: Yes (Other)
  Sender: FDA-Public Use
  Company Number: FR-JNJFOC-20100209538

PATIENT
  Age: 24 Year
  Sex: Female

DRUGS (2)
  1. REMICADE [Suspect]
     Indication: CROHN'S DISEASE
     Route: 042
  2. REMICADE [Suspect]
     Route: 042

REACTIONS (8)
  - ARTHRALGIA [None]
  - BACK PAIN [None]
  - CROHN'S DISEASE [None]
  - DRUG EXPOSURE DURING PREGNANCY [None]
  - GESTATIONAL HYPERTENSION [None]
  - MYALGIA [None]
  - TRISMUS [None]
  - TYPE IV HYPERSENSITIVITY REACTION [None]
